FAERS Safety Report 6293547-7 (Version None)
Quarter: 2009Q3

REPORT INFORMATION
  Report Type: 
  Country: None (occurrence: None)
  Receive Date: 20090803
  Receipt Date: 20090724
  Transmission Date: 20100115
  Serious: Yes (Death)
  Sender: FDA-Public Use
  Company Number: JP-BRISTOL-MYERS SQUIBB COMPANY-14718662

PATIENT
  Age: 31 Year
  Sex: Female

DRUGS (2)
  1. VEPESID [Suspect]
     Indication: NATURAL KILLER-CELL LEUKAEMIA
     Route: 041
     Dates: start: 20090130
  2. PREDNISOLONE [Suspect]
     Dates: start: 20090130

REACTIONS (1)
  - CEREBELLAR HAEMORRHAGE [None]
